FAERS Safety Report 10156809 (Version 1)
Quarter: 2014Q2

REPORT INFORMATION
  Report Type: Spontaneous
  Country: US (occurrence: None)
  Receive Date: 20140506
  Receipt Date: 20140506
  Transmission Date: 20141212
  Serious: No
  Sender: FDA-Public Use
  Company Number: None

PATIENT
  Age: 67 Year
  Sex: Female
  Weight: 58.97 kg

DRUGS (1)
  1. CYCLOSET [Suspect]
     Indication: DIABETES MELLITUS
     Route: 048
     Dates: start: 20140409, end: 20140505

REACTIONS (7)
  - Nausea [None]
  - Headache [None]
  - Somnolence [None]
  - Abdominal pain upper [None]
  - Rhinorrhoea [None]
  - Dry mouth [None]
  - Decreased appetite [None]
